FAERS Safety Report 18581688 (Version 1)
Quarter: 2020Q4

REPORT INFORMATION
  Report Type: Spontaneous
  Country: US (occurrence: US)
  Receive Date: 20201202
  Receipt Date: 20201202
  Transmission Date: 20210114
  Serious: No
  Sender: FDA-Public Use
  Company Number: None

PATIENT
  Age: 78 Year
  Sex: Male

DRUGS (1)
  1. TERAZOSIN [Suspect]
     Active Substance: TERAZOSIN HYDROCHLORIDE
     Indication: HYPERTENSION
     Dates: start: 20201109, end: 20201110

REACTIONS (10)
  - Dyspnoea [None]
  - Electrocardiogram ST segment elevation [None]
  - Feeling hot [None]
  - Dizziness [None]
  - Hypovolaemia [None]
  - Chest discomfort [None]
  - Hyperhidrosis [None]
  - Hypotension [None]
  - Nausea [None]
  - Dry skin [None]

NARRATIVE: CASE EVENT DATE: 20201110
